FAERS Safety Report 21509071 (Version 2)
Quarter: 2023Q1

REPORT INFORMATION
  Report Type: Spontaneous
  Country: TW (occurrence: TW)
  Receive Date: 20221026
  Receipt Date: 20230109
  Transmission Date: 20230418
  Serious: Yes (Hospitalization, Other)
  Sender: FDA-Public Use
  Company Number: TW-BRISTOL-MYERS SQUIBB COMPANY-2022-126873

PATIENT
  Age: 72 Year
  Sex: Female
  Weight: 60 kg

DRUGS (9)
  1. PACLITAXEL [Suspect]
     Active Substance: PACLITAXEL
     Indication: Oesophageal carcinoma
     Dosage: (60MG/M2)                      D1, D8
     Route: 042
     Dates: start: 20211008, end: 20220225
  2. PACLITAXEL [Suspect]
     Active Substance: PACLITAXEL
     Route: 042
     Dates: start: 20220311, end: 20220429
  3. CISPLATIN [Suspect]
     Active Substance: CISPLATIN
     Indication: Oesophageal carcinoma
     Dosage: (30MG/M2/24HR)          D1, D8
     Route: 042
     Dates: start: 20211008, end: 20220225
  4. CISPLATIN [Suspect]
     Active Substance: CISPLATIN
     Dosage: (30MG/M2/24HR)          D1, D8
     Route: 042
     Dates: start: 20220311, end: 20220429
  5. FLUOROURACIL [Suspect]
     Active Substance: FLUOROURACIL
     Indication: Oesophageal carcinoma
     Dosage: 2400MG(1500MG/M2/24HR)   D1,D8
     Route: 042
     Dates: start: 20211008, end: 20220225
  6. FLUOROURACIL [Suspect]
     Active Substance: FLUOROURACIL
     Route: 042
     Dates: start: 20220311, end: 20220429
  7. FLUOROURACIL [Suspect]
     Active Substance: FLUOROURACIL
     Route: 042
     Dates: end: 202205
  8. LEUCOVORIN [Suspect]
     Active Substance: LEUCOVORIN
     Indication: Oesophageal carcinoma
     Dosage: (150MG/M2)                D1, D8
  9. GRANULOCYTE COLONY-STIMULATING FACTOR NOS [Concomitant]
     Active Substance: GRANULOCYTE COLONY-STIMULATING FACTOR NOS
     Indication: Product used for unknown indication
     Dosage: D5, D11, D12

REACTIONS (4)
  - Thrombocytopenia [Unknown]
  - Anaemia [Unknown]
  - Neutropenia [Unknown]
  - Mucosal inflammation [Unknown]

NARRATIVE: CASE EVENT DATE: 20211029
